FAERS Safety Report 13735655 (Version 1)
Quarter: 2017Q3

REPORT INFORMATION
  Report Type: Spontaneous
  Country: None (occurrence: US)
  Receive Date: 20170707
  Receipt Date: 20170707
  Transmission Date: 20171127
  Serious: Yes (Hospitalization)
  Sender: FDA-Public Use
  Company Number: None

PATIENT
  Age: 37 Year
  Sex: Female

DRUGS (1)
  1. NEULASTA [Suspect]
     Active Substance: PEGFILGRASTIM
     Indication: PRODUCT USED FOR UNKNOWN INDICATION
     Dosage: INJECT 0.6 ML (6MG TOTAL) EVERY 14 DAYS SUBCUTANEOUSLY
     Route: 058
     Dates: start: 20170602

REACTIONS (2)
  - Product quality issue [None]
  - White blood cell count decreased [None]

NARRATIVE: CASE EVENT DATE: 20170615
